FAERS Safety Report 5530930-9 (Version None)
Quarter: 2007Q4

REPORT INFORMATION
  Report Type: 
  Country: None (occurrence: None)
  Receive Date: 20071130
  Receipt Date: 20071121
  Transmission Date: 20080405
  Serious: Yes (Hospitalization)
  Sender: FDA-Public Use
  Company Number: CA-PFIZER INC-2007098245

PATIENT
  Age: 43 Year
  Sex: Male
  Weight: 108 kg

DRUGS (5)
  1. VIAGRA [Suspect]
     Indication: ERECTILE DYSFUNCTION
     Route: 048
  2. TAMBOCOR [Suspect]
     Indication: ATRIAL FIBRILLATION
     Route: 048
     Dates: start: 20070906, end: 20071104
  3. CIPROFLOXACIN [Concomitant]
     Route: 048
     Dates: start: 20071016, end: 20071023
  4. METRONIDAZOLE [Concomitant]
     Route: 048
     Dates: start: 20071016, end: 20071023
  5. DIGOXIN [Concomitant]
     Route: 048

REACTIONS (1)
  - VENTRICULAR FIBRILLATION [None]
